FAERS Safety Report 7701495-8 (Version None)
Quarter: 2011Q3

REPORT INFORMATION
  Report Type: 
  Country: None (occurrence: None)
  Receive Date: 20110822
  Receipt Date: 20110816
  Transmission Date: 20111222
  Serious: Yes (Hospitalization)
  Sender: FDA-Public Use
  Company Number: US-MERCK-1108USA02030

PATIENT
  Age: 64 Year
  Sex: Female

DRUGS (5)
  1. ACTONEL [Concomitant]
     Route: 065
  2. ASPIRIN [Concomitant]
     Route: 065
  3. JANUVIA [Suspect]
     Indication: DIABETES MELLITUS
     Route: 048
     Dates: start: 20110719, end: 20110801
  4. BENZONATATE [Concomitant]
     Route: 065
  5. LIPITOR [Concomitant]
     Route: 065

REACTIONS (2)
  - UPPER RESPIRATORY TRACT INFECTION [None]
  - PYREXIA [None]
